FAERS Safety Report 4796644-8 (Version None)
Quarter: 2005Q4

REPORT INFORMATION
  Report Type: 
  Country: None (occurrence: None)
  Receive Date: 20051013
  Receipt Date: 20051005
  Transmission Date: 20060501
  Serious: Yes (Life-Threatening, Hospitalization)
  Sender: FDA-Public Use
  Company Number: NO-JNJFOC-20051000931

PATIENT
  Sex: Female

DRUGS (9)
  1. REMICADE [Suspect]
     Indication: RHEUMATOID ARTHRITIS
     Route: 042
  2. CALCIGRAN [Concomitant]
     Route: 048
     Dates: start: 20000101
  3. CALCIGRAN [Concomitant]
     Route: 048
     Dates: start: 20000101
  4. CALCIGRAN [Concomitant]
     Route: 048
     Dates: start: 20000101
  5. CALCIGRAN [Concomitant]
     Route: 048
     Dates: start: 20000101
  6. FOLIC ACID [Concomitant]
     Route: 048
     Dates: start: 20000101
  7. CELEBRA [Concomitant]
     Indication: RHEUMATOID ARTHRITIS
     Route: 048
  8. METHOTREXATE [Concomitant]
     Indication: RHEUMATOID ARTHRITIS
     Route: 048
  9. PREDNISOLONE [Concomitant]
     Indication: RHEUMATOID ARTHRITIS
     Dosage: USED FOR 25 YEARS
     Route: 048

REACTIONS (1)
  - LUNG NEOPLASM MALIGNANT [None]
